FAERS Safety Report 21050228 (Version 2)
Quarter: 2022Q3

REPORT INFORMATION
  Report Type: Report from Study
  Country: IN (occurrence: IN)
  Receive Date: 20220706
  Receipt Date: 20220715
  Transmission Date: 20221026
  Serious: Yes (Life-Threatening, Other)
  Sender: FDA-Public Use
  Company Number: IN-JNJFOC-20220700064

PATIENT

DRUGS (4)
  1. REMICADE [Suspect]
     Active Substance: INFLIXIMAB
     Indication: Inflammatory bowel disease
     Route: 041
  2. ADALIMUMAB [Suspect]
     Active Substance: ADALIMUMAB
     Indication: Inflammatory bowel disease
     Route: 065
  3. METHOTREXATE [Concomitant]
     Active Substance: METHOTREXATE
     Indication: Inflammatory bowel disease
     Route: 065
  4. AZATHIOPRINE [Concomitant]
     Active Substance: AZATHIOPRINE
     Indication: Inflammatory bowel disease
     Route: 065

REACTIONS (9)
  - Infusion related reaction [Unknown]
  - Tuberculosis [Unknown]
  - Hepatitis B reactivation [Unknown]
  - Lupus-like syndrome [Unknown]
  - Herpes zoster [Unknown]
  - Varicella [Unknown]
  - Paronychia [Unknown]
  - Infection [Unknown]
  - Arthritis [Unknown]
